FAERS Safety Report 9831412 (Version 2)
Quarter: 2014Q1

REPORT INFORMATION
  Report Type: Other
  Country: HK (occurrence: HK)
  Receive Date: 20140121
  Receipt Date: 20140130
  Transmission Date: 20141002
  Serious: Yes (Life-Threatening, Hospitalization, Other)
  Sender: FDA-Public Use
  Company Number: CN-BRISTOL-MYERS SQUIBB COMPANY-19986348

PATIENT
  Age: 86 Year
  Sex: Female

DRUGS (3)
  1. METFORMIN HCL [Suspect]
     Indication: TYPE 2 DIABETES MELLITUS
  2. GLICLAZIDE [Suspect]
     Indication: TYPE 2 DIABETES MELLITUS
  3. POLYETHYLENE GLYCOL [Suspect]

REACTIONS (4)
  - Lactic acidosis [Recovering/Resolving]
  - Renal failure acute [Recovering/Resolving]
  - Adenocarcinoma [Unknown]
  - Urinary tract infection bacterial [Unknown]
